FAERS Safety Report 5657336-6 (Version None)
Quarter: 2008Q1

REPORT INFORMATION
  Report Type: 
  Country: None (occurrence: None)
  Receive Date: 20080310
  Receipt Date: 20080227
  Transmission Date: 20080703
  Serious: Yes (Other)
  Sender: FDA-Public Use
  Company Number: PHHY2008JP02336

PATIENT
  Age: 14 Year
  Sex: Male

DRUGS (2)
  1. CYCLOSPORINE [Suspect]
     Indication: STEM CELL TRANSPLANT
  2. METHOTREXATE [Suspect]
     Indication: STEM CELL TRANSPLANT

REACTIONS (2)
  - GLOMERULONEPHRITIS MEMBRANOUS [None]
  - HERPES ZOSTER DISSEMINATED [None]
